FAERS Safety Report 21399257 (Version 2)
Quarter: 2022Q4

REPORT INFORMATION
  Report Type: Spontaneous
  Country: US (occurrence: US)
  Receive Date: 20221001
  Receipt Date: 20221207
  Transmission Date: 20230113
  Serious: No
  Sender: FDA-Public Use
  Company Number: US-JNJFOC-20220949444

PATIENT
  Sex: Female

DRUGS (2)
  1. MACITENTAN [Interacting]
     Active Substance: MACITENTAN
     Indication: Product used for unknown indication
     Route: 048
  2. LASIX [Concomitant]
     Active Substance: FUROSEMIDE

REACTIONS (4)
  - Drug interaction [Unknown]
  - Middle ear inflammation [Unknown]
  - Nasal congestion [Unknown]
  - Ear discomfort [Unknown]
